FAERS Safety Report 23860935 (Version 1)
Quarter: 2024Q2

REPORT INFORMATION
  Report Type: Spontaneous
  Country: US (occurrence: US)
  Receive Date: 20240516
  Receipt Date: 20240516
  Transmission Date: 20240716
  Serious: Yes (Hospitalization)
  Sender: FDA-Public Use
  Company Number: US-ABBVIE-5760401

PATIENT
  Sex: Female

DRUGS (1)
  1. LEXAPRO [Suspect]
     Active Substance: ESCITALOPRAM OXALATE
     Indication: Major depression
     Route: 048

REACTIONS (6)
  - Hospitalisation [Unknown]
  - Hallucination [Unknown]
  - Depressed mood [Unknown]
  - Psychotic disorder [Unknown]
  - Emotional distress [Unknown]
  - Unevaluable event [Unknown]
